FAERS Safety Report 8472136-X (Version None)
Quarter: 2012Q2

REPORT INFORMATION
  Report Type: 
  Country: None (occurrence: None)
  Receive Date: 20120627
  Receipt Date: 20120619
  Transmission Date: 20120825
  Serious: Yes (Hospitalization)
  Sender: FDA-Public Use
  Company Number: FR-VERTEX PHARMACEUTICALS INC.-AE-2011-001395

PATIENT
  Sex: Male
  Weight: 60 kg

DRUGS (4)
  1. PEGASYS [Concomitant]
     Route: 058
     Dates: start: 20110818, end: 20120208
  2. COPEGUS [Concomitant]
     Indication: HEPATITIS C
     Route: 048
     Dates: end: 20120208
  3. PEGASYS [Concomitant]
     Indication: HEPATITIS C
     Route: 058
  4. VX-950 [Suspect]
     Indication: HEPATITIS C
     Route: 048
     Dates: start: 20110309, end: 20110601

REACTIONS (3)
  - CRYOGLOBULINAEMIA [None]
  - PYREXIA [None]
  - STAPHYLOCOCCAL SEPSIS [None]
